FAERS Safety Report 20446361 (Version 2)
Quarter: 2022Q1

REPORT INFORMATION
  Report Type: Spontaneous
  Country: DE (occurrence: DE)
  Receive Date: 20220208
  Receipt Date: 20220228
  Transmission Date: 20220423
  Serious: Yes (Death, Hospitalization)
  Sender: FDA-Public Use
  Company Number: DE-CELGENE-DEU-20220201282

PATIENT
  Age: 59 Year
  Sex: Male

DRUGS (3)
  1. ABRAXANE [Suspect]
     Active Substance: PACLITAXEL
     Indication: Non-small cell lung cancer
     Dosage: 564 MILLIGRAM
     Route: 041
     Dates: start: 20211014, end: 20211101
  2. NIVOLUMAB [Suspect]
     Active Substance: NIVOLUMAB
     Indication: Non-small cell lung cancer
     Dosage: 360 MILLIGRAM
     Route: 041
     Dates: start: 20211014, end: 20211216
  3. IPILIMUMAB [Suspect]
     Active Substance: IPILIMUMAB
     Indication: Non-small cell lung cancer
     Dosage: 60 MILLIGRAM
     Route: 041
     Dates: start: 20211014, end: 20211125

REACTIONS (1)
  - Immune-mediated hepatitis [Fatal]

NARRATIVE: CASE EVENT DATE: 20211230
